FAERS Safety Report 5711174-4 (Version None)
Quarter: 2008Q2

REPORT INFORMATION
  Report Type: 
  Country: None (occurrence: None)
  Receive Date: 20080421
  Receipt Date: 20080416
  Transmission Date: 20081010
  Serious: Yes (Hospitalization)
  Sender: FDA-Public Use
  Company Number: ES-JNJFOC-20080405011

PATIENT
  Age: 6 Year
  Sex: Female

DRUGS (1)
  1. RISPERDAL [Suspect]
     Indication: ABNORMAL BEHAVIOUR
     Dates: start: 20071207, end: 20080202

REACTIONS (1)
  - MASS [None]
